FAERS Safety Report 8589793-X (Version None)
Quarter: 2012Q3

REPORT INFORMATION
  Report Type: 
  Country: None (occurrence: None)
  Receive Date: 20120813
  Receipt Date: 20120716
  Transmission Date: 20120928
  Serious: No
  Sender: FDA-Public Use
  Company Number: US-009507513-1207USA009474

PATIENT

DRUGS (9)
  1. MIRALAX [Suspect]
     Indication: HERNIA
     Dosage: UNK, UNKNOWN
     Route: 048
     Dates: start: 20120501
  2. MIRALAX [Suspect]
     Indication: CONSTIPATION
  3. SUCRALFATE [Concomitant]
     Indication: PRODUCT USED FOR UNKNOWN INDICATION
     Dosage: UNK, UNKNOWN
  4. DILTIAZEM HCL [Concomitant]
     Indication: PRODUCT USED FOR UNKNOWN INDICATION
     Dosage: UNK, UNKNOWN
  5. TYLENOL [Concomitant]
     Indication: ARTHRITIS
     Dosage: UNK, UNKNOWN
  6. MIRALAX [Suspect]
     Indication: SMALL INTESTINAL OBSTRUCTION
  7. MIRALAX [Suspect]
     Indication: MEDICAL OBSERVATION
  8. PRAVASTATIN SODIUM [Concomitant]
     Indication: PRODUCT USED FOR UNKNOWN INDICATION
     Dosage: UNK, UNKNOWN
  9. OMEPRAZOLE [Concomitant]
     Indication: PRODUCT USED FOR UNKNOWN INDICATION
     Dosage: 40 MG, UNKNOWN

REACTIONS (1)
  - DIARRHOEA [None]
